FAERS Safety Report 14600006 (Version 6)
Quarter: 2022Q2

REPORT INFORMATION
  Report Type: Spontaneous
  Country: US (occurrence: US)
  Receive Date: 20180305
  Receipt Date: 20220426
  Transmission Date: 20220721
  Serious: Yes (Hospitalization, Other)
  Sender: FDA-Public Use
  Company Number: US-PFIZER INC-2018089952

PATIENT
  Age: 58 Year
  Sex: Male
  Weight: 95.25 kg

DRUGS (5)
  1. RAPAMUNE [Suspect]
     Active Substance: SIROLIMUS
     Indication: Renal transplant
     Dosage: 4 MG, DAILY
     Route: 048
     Dates: start: 20131003
  2. RAPAMUNE [Suspect]
     Active Substance: SIROLIMUS
     Indication: Immune system disorder
     Dosage: 3.5 MG, 1X/DAY (ONCE A DAY 3+1/2 MG)
  3. RAPAMUNE [Suspect]
     Active Substance: SIROLIMUS
     Dosage: 4 MG, ONCE DAILY
     Route: 048
     Dates: start: 2015
  4. RAPAMUNE [Suspect]
     Active Substance: SIROLIMUS
     Dosage: 2.5 MG, DAILY (STRENGTHS 0.5 MG AND 1 MG)
     Route: 048
  5. WARFARIN [Concomitant]
     Active Substance: WARFARIN
     Indication: Anticoagulant therapy
     Dosage: UNK
     Dates: start: 201804, end: 201810

REACTIONS (8)
  - Cardiac disorder [Recovered/Resolved]
  - Atrioventricular block [Recovered/Resolved]
  - Arterial occlusive disease [Recovered/Resolved]
  - Bone cancer [Not Recovered/Not Resolved]
  - Intentional product misuse [Unknown]
  - Hip arthroplasty [Unknown]
  - Dyspnoea [Not Recovered/Not Resolved]
  - Wrong technique in product usage process [Unknown]

NARRATIVE: CASE EVENT DATE: 20180201
